FAERS Safety Report 6216805-0 (Version None)
Quarter: 2009Q2

REPORT INFORMATION
  Report Type: 
  Country: None (occurrence: None)
  Receive Date: 20090603
  Receipt Date: 20090603
  Transmission Date: 20091009
  Serious: Yes (Disabling, Other)
  Sender: FDA-Public Use
  Company Number: None

PATIENT
  Sex: Female
  Weight: 72.5755 kg

DRUGS (1)
  1. BONIVA [Suspect]
     Indication: OSTEOPENIA
     Dosage: 1 A MONTH TABLET
     Dates: start: 20090401

REACTIONS (7)
  - BACK PAIN [None]
  - BONE PAIN [None]
  - CHILLS [None]
  - DISCOMFORT [None]
  - PAIN [None]
  - PYREXIA [None]
  - VOMITING [None]
